FAERS Safety Report 4889358-7 (Version None)
Quarter: 2006Q1

REPORT INFORMATION
  Report Type: 
  Country: None (occurrence: None)
  Receive Date: 20060120
  Receipt Date: 20060120
  Transmission Date: 20060701
  Serious: Yes (Hospitalization)
  Sender: FDA-Public Use
  Company Number: None

PATIENT
  Age: 26 Year
  Sex: Male

DRUGS (7)
  1. OLANZAPINE [Suspect]
     Dosage: 30 MG
  2. CHLORPROMAZINE [Concomitant]
  3. LITHIUM [Concomitant]
  4. DIVALPROEX SODIUM [Concomitant]
  5. CHLORAL HYDRATE [Concomitant]
  6. PROPRANOLOL [Concomitant]
  7. NEURONTIN [Concomitant]

REACTIONS (1)
  - NEUROLEPTIC MALIGNANT SYNDROME [None]
